FAERS Safety Report 23862835 (Version 1)
Quarter: 2024Q2

REPORT INFORMATION
  Report Type: Spontaneous
  Country: US (occurrence: None)
  Receive Date: 20240515
  Receipt Date: 20240515
  Transmission Date: 20240715
  Serious: Yes (Death)
  Sender: FDA-Public Use
  Company Number: None

PATIENT
  Age: 78 Year
  Sex: Female
  Weight: 58 kg

DRUGS (2)
  1. APIXABAN [Suspect]
     Active Substance: APIXABAN
     Indication: Atrial fibrillation
     Dosage: FREQUENCY : TWICE A DAY;?
     Route: 048
     Dates: start: 20240223, end: 20240226
  2. CLOPIDOGREL [Concomitant]
     Active Substance: CLOPIDOGREL BISULFATE
     Dates: start: 20240216, end: 20240226

REACTIONS (14)
  - Hemiparesis [None]
  - Atrial fibrillation [None]
  - Carotid artery stenosis [None]
  - Acute myocardial infarction [None]
  - Delirium [None]
  - Cerebral haemorrhage [None]
  - Rectal haemorrhage [None]
  - Encephalomalacia [None]
  - Cerebellar atrophy [None]
  - Nystagmus [None]
  - Partial seizures [None]
  - Somnolence [None]
  - Cerebral haemorrhage [None]
  - Hydrocephalus [None]

NARRATIVE: CASE EVENT DATE: 20240226
